FAERS Safety Report 9785079 (Version 1)
Quarter: 2013Q4

REPORT INFORMATION
  Report Type: Spontaneous
  Country: US (occurrence: US)
  Receive Date: 20131227
  Receipt Date: 20131227
  Transmission Date: 20140711
  Serious: No
  Sender: FDA-Public Use
  Company Number: US-B.I. PHARMACEUTICALS,INC./RIDGEFIELD-2013-BI-41855BP

PATIENT
  Sex: Female

DRUGS (1)
  1. MICARDIS [Suspect]
     Indication: PRODUCT USED FOR UNKNOWN INDICATION
     Dosage: 160 MG
     Route: 048
     Dates: start: 2011

REACTIONS (2)
  - Cough [Unknown]
  - Overdose [Unknown]
